FAERS Safety Report 8537726-4 (Version None)
Quarter: 2012Q3

REPORT INFORMATION
  Report Type: 
  Country: None (occurrence: None)
  Receive Date: 20120725
  Receipt Date: 20120718
  Transmission Date: 20120928
  Serious: Yes (Hospitalization)
  Sender: FDA-Public Use
  Company Number: GXBR2012US001671

PATIENT
  Sex: Female

DRUGS (1)
  1. CHLORPROMAZINE HCL [Suspect]
     Dosage: 50 MG, TID
     Route: 048
     Dates: start: 20120401, end: 20120601

REACTIONS (3)
  - BRAIN OEDEMA [None]
  - NERVOUS SYSTEM DISORDER [None]
  - CENTRAL NERVOUS SYSTEM INFLAMMATION [None]
